FAERS Safety Report 9306345 (Version 1)
Quarter: 2013Q2

REPORT INFORMATION
  Report Type: Spontaneous
  Country: JP (occurrence: JP)
  Receive Date: 20130523
  Receipt Date: 20130523
  Transmission Date: 20140414
  Serious: Yes (Death, Other)
  Sender: FDA-Public Use
  Company Number: JP-BAYER-2012-003454

PATIENT
  Age: 63 Year
  Sex: Male

DRUGS (4)
  1. NEXAVAR [Suspect]
     Indication: HEPATOCELLULAR CARCINOMA
     Dosage: DAILY DOSE 200 MG
     Route: 048
     Dates: start: 20111102
  2. NEXAVAR [Suspect]
     Indication: HEPATOCELLULAR CARCINOMA
     Dosage: 200 MG, QOD
     Route: 048
  3. EPIRUBICIN HYDROCHLORIDE [Concomitant]
     Indication: THERAPEUTIC EMBOLISATION
     Dosage: 30 MG
     Route: 013
     Dates: start: 201110, end: 201110
  4. IODIZED OIL [Concomitant]
     Indication: THERAPEUTIC EMBOLISATION
     Dosage: 3 ML
     Route: 013
     Dates: start: 201110, end: 201110

REACTIONS (7)
  - Hypertension [Recovering/Resolving]
  - Fatigue [None]
  - Lung abscess [None]
  - Staphylococcal sepsis [Fatal]
  - Pyrexia [Fatal]
  - Circulatory collapse [None]
  - Septic shock [Fatal]
